FAERS Safety Report 25783398 (Version 1)
Quarter: 2025Q3

REPORT INFORMATION
  Report Type: Spontaneous
  Country: CA (occurrence: CA)
  Receive Date: 20250910
  Receipt Date: 20250910
  Transmission Date: 20251020
  Serious: Yes (Other)
  Sender: ACCORD
  Company Number: None

PATIENT
  Age: 81 Year
  Sex: Male

DRUGS (9)
  1. CARBOPLATIN [Suspect]
     Active Substance: CARBOPLATIN
     Indication: Adenosquamous cell lung cancer stage II
     Route: 042
  2. GEMCITABINE HYDROCHLORIDE [Suspect]
     Active Substance: GEMCITABINE HYDROCHLORIDE
     Indication: Adenosquamous cell lung cancer stage III
  3. METHOTREXATE [Suspect]
     Active Substance: METHOTREXATE
     Indication: Dermatomyositis
  4. HYDROXYCHLOROQUINE [Concomitant]
     Active Substance: HYDROXYCHLOROQUINE
     Indication: Product used for unknown indication
  5. IMMUNOGLOBULINS [Concomitant]
     Indication: Dermatomyositis
  6. NIVOLUMAB [Concomitant]
     Active Substance: NIVOLUMAB
     Indication: Malignant neoplasm progression
  7. PREDNISONE [Concomitant]
     Active Substance: PREDNISONE
     Indication: Dermatomyositis
  8. PREDNISONE [Concomitant]
     Active Substance: PREDNISONE
     Indication: Dermatomyositis
  9. PREDNISONE [Concomitant]
     Active Substance: PREDNISONE
     Indication: Dermatomyositis

REACTIONS (3)
  - Cytopenia [Unknown]
  - Febrile neutropenia [Unknown]
  - Pancytopenia [Unknown]
